FAERS Safety Report 4349025-5 (Version None)
Quarter: 2004Q2

REPORT INFORMATION
  Report Type: 
  Country: None (occurrence: None)
  Receive Date: 20040421
  Receipt Date: 20040408
  Transmission Date: 20050107
  Serious: Yes (Life-Threatening)
  Sender: FDA-Public Use
  Company Number: 200410147BCA

PATIENT
  Age: 9 Year
  Sex: Male
  Weight: 27 kg

DRUGS (5)
  1. FLEBOGAMMA [Suspect]
     Dosage: SEE IMAGE
     Route: 042
     Dates: start: 20040227
  2. FLEBOGAMMA [Suspect]
  3. RED BLOOD CELLS [Concomitant]
  4. DESFERAL [Concomitant]
  5. PREDNISONE [Concomitant]

REACTIONS (3)
  - ANAPHYLACTOID REACTION [None]
  - DRUG INEFFECTIVE [None]
  - RESPIRATORY DISTRESS [None]
